FAERS Safety Report 4614742-6 (Version None)
Quarter: 2005Q2

REPORT INFORMATION
  Report Type: 
  Country: None (occurrence: None)
  Receive Date: 20050310
  Receipt Date: 20041117
  Transmission Date: 20051028
  Serious: Yes (Other)
  Sender: FDA-Public Use
  Company Number: A03200403887

PATIENT
  Age: 75 Year
  Sex: Male
  Weight: 63.5036 kg

DRUGS (8)
  1. ELOXATIN - OXAPLATIN - SOLUTION - 145 MG [Suspect]
     Indication: COLORECTAL CANCER
     Dosage: 145 MG OTHER - INTRAVENEOUS NOS
     Route: 042
     Dates: start: 20041115, end: 20041115
  2. ELOXATIN - OXAPLATIN - SOLUTION - 145 MG [Suspect]
     Indication: METASTASES TO LIVER
     Dosage: 145 MG OTHER - INTRAVENEOUS NOS
     Route: 042
     Dates: start: 20041115, end: 20041115
  3. DOLASETRON MESILATE [Concomitant]
  4. DEXAMETHASONE [Concomitant]
  5. CALCIUM GLUCONATE [Concomitant]
  6. MAGNESIUM [Concomitant]
  7. FLUOROURACIL [Concomitant]
  8. LEUCOVORIN CALCIUM [Concomitant]

REACTIONS (2)
  - DIZZINESS [None]
  - HYPOTENSION [None]
